FAERS Safety Report 9228233 (Version 1)
Quarter: 2013Q2

REPORT INFORMATION
  Report Type: Spontaneous
  Country: ES (occurrence: ES)
  Receive Date: 20130412
  Receipt Date: 20130412
  Transmission Date: 20140414
  Serious: Yes (Death)
  Sender: FDA-Public Use
  Company Number: ES-CELGENEUS-144-50794-13040302

PATIENT
  Sex: 0

DRUGS (1)
  1. VIDAZA [Suspect]
     Indication: MYELODYSPLASTIC SYNDROME
     Dosage: 7 OR LESS OFTEN 5 DAYS/4 WEEKS
     Route: 065

REACTIONS (3)
  - Death [Fatal]
  - Myelodysplastic syndrome [Unknown]
  - Condition aggravated [Unknown]
